APPROVED DRUG PRODUCT: CEPHALEXIN
Active Ingredient: CEPHALEXIN
Strength: EQ 250MG BASE
Dosage Form/Route: TABLET;ORAL
Application: A063024 | Product #002
Applicant: TEVA PHARMACEUTICALS USA INC
Approved: Jan 12, 1989 | RLD: No | RS: No | Type: RX